FAERS Safety Report 15151132 (Version 1)
Quarter: 2018Q3

REPORT INFORMATION
  Report Type: Spontaneous
  Country: US (occurrence: US)
  Receive Date: 20180619
  Receipt Date: 20180619
  Transmission Date: 20181010
  Serious: Yes (Other)
  Sender: FDA-Public Use
  Company Number: None

PATIENT
  Age: 67 Year
  Sex: Female
  Weight: 78.47 kg

DRUGS (15)
  1. FISH OIL [Concomitant]
     Active Substance: FISH OIL
  2. VITAMIN E [Concomitant]
     Active Substance: .ALPHA.-TOCOPHEROL
  3. VITAMIN C [Concomitant]
     Active Substance: ASCORBIC ACID
  4. ASA [Concomitant]
     Active Substance: ASPIRIN
  5. OMEGA 3 [Concomitant]
     Active Substance: OMEGA-3 FATTY ACIDS
  6. LECITHIN [Concomitant]
     Active Substance: LECITHIN
  7. PROBIOTICS [Concomitant]
     Active Substance: PROBIOTICS NOS
  8. ESCITALOPRAM [Concomitant]
     Active Substance: ESCITALOPRAM OXALATE
  9. CALCIUM [Concomitant]
     Active Substance: CALCIUM
  10. LEVOTHYROXINE 75MCG TAB LANNETT [Suspect]
     Active Substance: LEVOTHYROXINE
     Indication: HYPOTHYROIDISM
     Dosage: ONE TABLET DAILY BY  MOUTH IN THE MORNING?
     Route: 048
     Dates: start: 20180121, end: 20180214
  11. VITAMIN B12 [Concomitant]
     Active Substance: CYANOCOBALAMIN
  12. MULTIVITAMIN [Concomitant]
     Active Substance: VITAMINS
  13. MAGNESIUM CITRATE. [Concomitant]
     Active Substance: MAGNESIUM CITRATE
  14. TUMERIC CURCUMIN COMPLEX [Concomitant]
  15. VITAMIN D3 [Concomitant]
     Active Substance: CHOLECALCIFEROL

REACTIONS (5)
  - Nausea [None]
  - Product substitution issue [None]
  - Vomiting [None]
  - Panic attack [None]
  - Pneumonia [None]

NARRATIVE: CASE EVENT DATE: 20180202
